FAERS Safety Report 4455330-4 (Version None)
Quarter: 2004Q3

REPORT INFORMATION
  Report Type: 
  Country: None (occurrence: None)
  Receive Date: 20040825
  Receipt Date: 20040618
  Transmission Date: 20050211
  Serious: No
  Sender: FDA-Public Use
  Company Number: 207279

PATIENT
  Age: 49 Year
  Sex: Male

DRUGS (2)
  1. RAPTIVA [Suspect]
     Indication: PSORIASIS
     Dosage: 0.7 ML,SINGLE,SUBCUTANEOUS
     Route: 058
     Dates: start: 20040604, end: 20040604
  2. PREDNISONE [Concomitant]

REACTIONS (2)
  - CHILLS [None]
  - DIARRHOEA [None]
